FAERS Safety Report 8474866-2 (Version None)
Quarter: 2012Q2

REPORT INFORMATION
  Report Type: 
  Country: None (occurrence: None)
  Receive Date: 20120628
  Receipt Date: 20120621
  Transmission Date: 20120825
  Serious: Yes (Hospitalization)
  Sender: FDA-Public Use
  Company Number: US-PFIZER INC-2012150093

PATIENT
  Sex: Female

DRUGS (2)
  1. DETROL LA [Suspect]
     Indication: URINARY INCONTINENCE
     Dosage: 4 MG, 1X/DAY
     Route: 048
     Dates: start: 20020101
  2. DETROL LA [Suspect]
     Dosage: 4 MG, 2X/DAY
     Route: 048

REACTIONS (4)
  - TOOTH DISORDER [None]
  - MICTURITION DISORDER [None]
  - URINARY INCONTINENCE [None]
  - NOCTURIA [None]
